FAERS Safety Report 10403172 (Version 1)
Quarter: 2014Q3

REPORT INFORMATION
  Report Type: Spontaneous
  Country: CA (occurrence: CA)
  Receive Date: 20140822
  Receipt Date: 20140822
  Transmission Date: 20150326
  Serious: Yes (Other)
  Sender: FDA-Public Use
  Company Number: CA-GLAXOSMITHKLINE-A1086037A

PATIENT
  Age: 36 Year
  Sex: Female

DRUGS (6)
  1. RADIATION [Suspect]
     Active Substance: RADIATION THERAPY
     Indication: METASTASES TO CENTRAL NERVOUS SYSTEM
     Route: 065
  2. TAMOXIFEN [Concomitant]
     Active Substance: TAMOXIFEN
  3. CAPECITABINE [Suspect]
     Active Substance: CAPECITABINE
     Indication: METASTASES TO CENTRAL NERVOUS SYSTEM
     Route: 065
  4. PERTUZUMAB [Concomitant]
     Active Substance: PERTUZUMAB
     Indication: BREAST CANCER
     Route: 042
     Dates: start: 20130528, end: 20140318
  5. HERCEPTIN [Concomitant]
     Active Substance: TRASTUZUMAB
  6. TYKERB [Suspect]
     Active Substance: LAPATINIB DITOSYLATE
     Indication: METASTASES TO CENTRAL NERVOUS SYSTEM
     Route: 065

REACTIONS (1)
  - Malignant neoplasm progression [Unknown]
